FAERS Safety Report 23720729 (Version 2)
Quarter: 2024Q2

REPORT INFORMATION
  Report Type: Other
  Country: JP (occurrence: JP)
  Receive Date: 20240409
  Receipt Date: 20240523
  Transmission Date: 20240715
  Serious: Yes (Other)
  Sender: FDA-Public Use
  Company Number: JP-CHUGAI-2024010830

PATIENT
  Age: 28 Year
  Sex: Female
  Weight: 67 kg

DRUGS (5)
  1. ENSPRYNG [Suspect]
     Active Substance: SATRALIZUMAB-MWGE
     Indication: Neuromyelitis optica spectrum disorder
     Route: 058
     Dates: start: 20210713, end: 20210810
  2. ENSPRYNG [Suspect]
     Active Substance: SATRALIZUMAB-MWGE
     Route: 058
     Dates: start: 20210907, end: 20220113
  3. ENSPRYNG [Suspect]
     Active Substance: SATRALIZUMAB-MWGE
     Route: 058
     Dates: start: 20230208, end: 20230914
  4. TACROLIMUS [Concomitant]
     Active Substance: TACROLIMUS
     Indication: Neuromyelitis optica spectrum disorder
     Dosage: UNK
  5. TACROLIMUS [Concomitant]
     Active Substance: TACROLIMUS
     Dosage: UNK
     Dates: start: 20210713, end: 20220113

REACTIONS (2)
  - Subcutaneous abscess [Recovered/Resolved]
  - Perineal abscess [Recovered/Resolved]

NARRATIVE: CASE EVENT DATE: 20230701
